FAERS Safety Report 5938730-2 (Version None)
Quarter: 2008Q4

REPORT INFORMATION
  Report Type: 
  Country: None (occurrence: None)
  Receive Date: 20081103
  Receipt Date: 20081030
  Transmission Date: 20090506
  Serious: Yes (Other)
  Sender: FDA-Public Use
  Company Number: US-ASTRAZENECA-2007UW23177

PATIENT
  Age: 56 Year
  Sex: Female
  Weight: 86.2 kg

DRUGS (7)
  1. SEROQUEL XR [Suspect]
     Indication: BIPOLAR DISORDER
     Route: 048
  2. SEROQUEL XR [Suspect]
     Indication: POST-TRAUMATIC STRESS DISORDER
     Route: 048
  3. SEROQUEL XR [Suspect]
     Route: 048
  4. SEROQUEL XR [Suspect]
     Route: 048
  5. SEROQUEL [Concomitant]
     Route: 048
  6. LITHIUM [Concomitant]
  7. LEXAPRO [Concomitant]

REACTIONS (8)
  - DIZZINESS [None]
  - FALL [None]
  - FLAT AFFECT [None]
  - HEADACHE [None]
  - NAUSEA [None]
  - PALPITATIONS [None]
  - PELVIC DISCOMFORT [None]
  - SOMNOLENCE [None]
